FAERS Safety Report 5503075-1 (Version None)
Quarter: 2007Q4

REPORT INFORMATION
  Report Type: 
  Country: None (occurrence: None)
  Receive Date: 20071031
  Receipt Date: 20071018
  Transmission Date: 20080405
  Serious: Yes (Congenital Anomaly, Other)
  Sender: FDA-Public Use
  Company Number: BE-MERCK-0710BEL00017

PATIENT
  Sex: Male
  Weight: 2 kg

DRUGS (2)
  1. PRINZIDE [Suspect]
     Indication: HYPERTENSION
     Route: 064
  2. PROPRANOLOL HYDROCHLORIDE [Concomitant]
     Indication: HYPERTENSION
     Route: 064

REACTIONS (6)
  - FOETAL DISTRESS SYNDROME [None]
  - HYPOTENSION [None]
  - OLIGOHYDRAMNIOS [None]
  - POTTER'S SYNDROME [None]
  - PREMATURE BABY [None]
  - SMALL FOR DATES BABY [None]
